FAERS Safety Report 24007588 (Version 1)
Quarter: 2024Q2

REPORT INFORMATION
  Report Type: Spontaneous
  Country: US (occurrence: US)
  Receive Date: 20240625
  Receipt Date: 20240625
  Transmission Date: 20240716
  Serious: No
  Sender: FDA-Public Use
  Company Number: US-CIPLA LTD.-2024US03260

PATIENT

DRUGS (1)
  1. LANREOTIDE ACETATE [Suspect]
     Active Substance: LANREOTIDE ACETATE
     Indication: Product used for unknown indication
     Dosage: 120MG/0.5 ML
     Route: 030
     Dates: start: 20240326

REACTIONS (5)
  - Burning sensation [Unknown]
  - Incorrect route of product administration [Unknown]
  - Product physical consistency issue [Unknown]
  - Needle issue [Unknown]
  - Device deployment issue [Unknown]

NARRATIVE: CASE EVENT DATE: 20240326
